FAERS Safety Report 21394535 (Version 3)
Quarter: 2022Q4

REPORT INFORMATION
  Report Type: Spontaneous
  Country: DE (occurrence: DE)
  Receive Date: 20220930
  Receipt Date: 20221123
  Transmission Date: 20230112
  Serious: Yes (Other)
  Sender: FDA-Public Use
  Company Number: DE-NOVOPROD-963593

PATIENT
  Age: 46 Year
  Sex: Female

DRUGS (2)
  1. NOVORAPID [Suspect]
     Active Substance: INSULIN ASPART
     Dosage: UNK(USING THE PUMP AGAIN )
     Route: 058
  2. NOVORAPID [Suspect]
     Active Substance: INSULIN ASPART
     Indication: Type 1 diabetes mellitus
     Dosage: 30 IU
     Route: 058

REACTIONS (4)
  - Diabetic ketoacidosis [Unknown]
  - Product physical issue [Unknown]
  - Product leakage [Unknown]
  - Abdominal discomfort [Unknown]
